FAERS Safety Report 11654207 (Version 1)
Quarter: 2015Q4

REPORT INFORMATION
  Report Type: Spontaneous
  Country: IN (occurrence: IN)
  Receive Date: 20151023
  Receipt Date: 20151023
  Transmission Date: 20160304
  Serious: Yes (Hospitalization)
  Sender: FDA-Public Use
  Company Number: IN-009507513-1510IND010345

PATIENT
  Sex: Female
  Weight: 56 kg

DRUGS (1)
  1. JANUMET [Suspect]
     Active Substance: METFORMIN HYDROCHLORIDE\SITAGLIPTIN PHOSPHATE
     Indication: DIABETES MELLITUS
     Dosage: FREQUENCY BID, TOTAL DOSE 2 TABLET/DAY
     Route: 048

REACTIONS (1)
  - Dengue fever [Not Recovered/Not Resolved]
